FAERS Safety Report 17566844 (Version 4)
Quarter: 2020Q2

REPORT INFORMATION
  Report Type: Report from Study
  Country: IL (occurrence: IL)
  Receive Date: 20200320
  Receipt Date: 20200527
  Transmission Date: 20200713
  Serious: Yes (Hospitalization)
  Sender: FDA-Public Use
  Company Number: IL-AMGEN-ISRSL2020046529

PATIENT
  Age: 56 Year
  Sex: Female

DRUGS (1)
  1. NPLATE [Suspect]
     Active Substance: ROMIPLOSTIM
     Indication: IMMUNE THROMBOCYTOPENIA
     Dosage: 250 MICROGRAM, QWK (EVERY SEVEN DAYS)
     Route: 058
     Dates: start: 20180726, end: 2020

REACTIONS (3)
  - Ill-defined disorder [Not Recovered/Not Resolved]
  - Muscular weakness [Recovered/Resolved]
  - Cerebrovascular disorder [Unknown]

NARRATIVE: CASE EVENT DATE: 202003
